FAERS Safety Report 7965691-7 (Version None)
Quarter: 2011Q4

REPORT INFORMATION
  Report Type: 
  Country: None (occurrence: None)
  Receive Date: 20111208
  Receipt Date: 20111129
  Transmission Date: 20120403
  Serious: Yes (Hospitalization)
  Sender: FDA-Public Use
  Company Number: TN-ELI_LILLY_AND_COMPANY-TN201112001446

PATIENT
  Sex: Male
  Weight: 60 kg

DRUGS (5)
  1. SINTROM [Concomitant]
     Indication: ATRIAL FIBRILLATION
     Dosage: UNK, QD
  2. SIMCOR [Concomitant]
     Indication: ATRIAL FIBRILLATION
     Dosage: UNK, QD
  3. AMLODIPINE BESYLATE [Concomitant]
     Indication: ATRIAL FIBRILLATION
     Dosage: UNK, QD
  4. CISPLATIN [Concomitant]
     Indication: MESOTHELIOMA
  5. PEMETREXED [Suspect]
     Indication: MESOTHELIOMA
     Dosage: 800 MG, UNK
     Route: 042
     Dates: start: 20111005

REACTIONS (1)
  - ANGINA PECTORIS [None]
